FAERS Safety Report 15331263 (Version 1)
Quarter: 2018Q3

REPORT INFORMATION
  Report Type: Spontaneous
  Country: ES (occurrence: ES)
  Receive Date: 20180829
  Receipt Date: 20180829
  Transmission Date: 20181010
  Serious: Yes (Death, Other)
  Sender: FDA-Public Use
  Company Number: PHHY2018ES080375

PATIENT
  Age: 19 Month
  Sex: Female

DRUGS (2)
  1. ISONIASID [Suspect]
     Active Substance: ISONIAZID
     Indication: TUBERCULOSIS
     Route: 065
  2. RIFAMPICIN [Suspect]
     Active Substance: RIFAMPIN
     Indication: TUBERCULOSIS
     Route: 065

REACTIONS (3)
  - Cholestasis [Fatal]
  - Hepatotoxicity [Fatal]
  - Drug-induced liver injury [Fatal]
